FAERS Safety Report 8264836-1 (Version None)
Quarter: 2012Q2

REPORT INFORMATION
  Report Type: 
  Country: None (occurrence: None)
  Receive Date: 20120406
  Receipt Date: 20120402
  Transmission Date: 20120825
  Serious: Yes (Hospitalization, Other)
  Sender: FDA-Public Use
  Company Number: US-JNJFOC-20110808245

PATIENT
  Sex: Female
  Weight: 53.98 kg

DRUGS (4)
  1. DOXORUBICIN HCL [Suspect]
     Indication: MULTIPLE MYELOMA
     Route: 042
     Dates: start: 20110418
  2. VELCADE [Suspect]
     Indication: MULTIPLE MYELOMA
     Route: 042
     Dates: start: 20110415
  3. VELCADE [Suspect]
     Route: 042
     Dates: start: 20110509
  4. DEXAMETHASONE [Suspect]
     Indication: MULTIPLE MYELOMA
     Route: 048
     Dates: start: 20110415

REACTIONS (5)
  - URINARY TRACT INFECTION [None]
  - FATIGUE [None]
  - PERFORATED ULCER [None]
  - ASTHENIA [None]
  - INFECTIOUS PERITONITIS [None]
